FAERS Safety Report 9003999 (Version 1)
Quarter: 2013Q1

REPORT INFORMATION
  Report Type: Spontaneous
  Country: US (occurrence: US)
  Receive Date: 20130108
  Receipt Date: 20130108
  Transmission Date: 20140127
  Serious: Yes (Other)
  Sender: FDA-Public Use
  Company Number: US-009507513-1301USA001525

PATIENT
  Sex: Female

DRUGS (6)
  1. SINGULAIR [Suspect]
     Indication: ASTHMA
     Dosage: 10 MG, QD
  2. SINGULAIR [Suspect]
     Indication: HYPERSENSITIVITY
  3. CLARITIN-D [Suspect]
  4. NASONEX [Suspect]
  5. FLOVENT [Suspect]
  6. ZYRTEC [Suspect]

REACTIONS (1)
  - Asthma [Unknown]
